FAERS Safety Report 11927168 (Version 1)
Quarter: 2016Q1

REPORT INFORMATION
  Report Type: Spontaneous
  Country: US (occurrence: None)
  Receive Date: 20160115
  Receipt Date: 20160115
  Transmission Date: 20160526
  Serious: Yes (Life-Threatening)
  Sender: FDA-Public Use
  Company Number: None

PATIENT
  Age: 46 Year
  Sex: Male
  Weight: 90.72 kg

DRUGS (2)
  1. NEILMED SINUS RINSE [Suspect]
     Active Substance: SODIUM BICARBONATE\SODIUM CHLORIDE
     Indication: SLEEP APNOEA SYNDROME
     Dosage: ONE BOTTLE ONCE DAILY --
  2. FLUTICASONE PROPIONATE NASAL SPRAY [Concomitant]
     Active Substance: FLUTICASONE PROPIONATE

REACTIONS (4)
  - Wrong technique in product usage process [None]
  - Ear infection [None]
  - Hypoacusis [None]
  - Ear discomfort [None]

NARRATIVE: CASE EVENT DATE: 20160111
